FAERS Safety Report 18972663 (Version 2)
Quarter: 2021Q1

REPORT INFORMATION
  Report Type: Spontaneous
  Country: GB (occurrence: GB)
  Receive Date: 20210305
  Receipt Date: 20210310
  Transmission Date: 20210420
  Serious: Yes (Disabling, Other)
  Sender: FDA-Public Use
  Company Number: GB-FERRINGPH-2021FE01265

PATIENT
  Age: 33 Year
  Sex: Female

DRUGS (1)
  1. MENOPUR [Suspect]
     Active Substance: FOLLITROPIN\LUTEINIZING HORMONE
     Indication: ARTIFICIAL INSEMINATION
     Dosage: 3 X 75IU DOSES
     Route: 065
     Dates: start: 202010, end: 202010

REACTIONS (2)
  - Gastric cancer [Unknown]
  - Gastric pH decreased [Unknown]
